FAERS Safety Report 21784858 (Version 1)
Quarter: 2022Q4

REPORT INFORMATION
  Report Type: Spontaneous
  Country: FR (occurrence: FR)
  Receive Date: 20221227
  Receipt Date: 20221227
  Transmission Date: 20230113
  Serious: Yes (Hospitalization)
  Sender: FDA-Public Use
  Company Number: None

PATIENT
  Age: 63 Year
  Sex: Male
  Weight: 117.6 kg

DRUGS (2)
  1. LINEZOLID [Suspect]
     Active Substance: LINEZOLID
     Indication: Osteitis
     Dosage: MORNING AND EVNING
     Route: 048
     Dates: start: 20221025, end: 20221110
  2. CIPROFLOXACIN [Suspect]
     Active Substance: CIPROFLOXACIN
     Indication: Osteitis
     Dosage: 750 MG, 2X/DAY
     Route: 048
     Dates: start: 20221025, end: 20221115

REACTIONS (3)
  - Thrombocytopenia [Recovered/Resolved]
  - Photosensitivity reaction [Recovered/Resolved]
  - Off label use [Unknown]

NARRATIVE: CASE EVENT DATE: 20221025
